FAERS Safety Report 18799790 (Version 1)
Quarter: 2021Q1

REPORT INFORMATION
  Report Type: Spontaneous
  Country: GB (occurrence: GB)
  Receive Date: 20210128
  Receipt Date: 20210128
  Transmission Date: 20210419
  Serious: Yes (Life-Threatening, Hospitalization)
  Sender: FDA-Public Use
  Company Number: GB-ROCHE-2758971

PATIENT
  Age: 54 Year
  Sex: Male

DRUGS (17)
  1. RITUXIMAB. [Suspect]
     Active Substance: RITUXIMAB
     Indication: CENTRAL NERVOUS SYSTEM LYMPHOMA
     Route: 041
  2. ALLOPURINOL. [Concomitant]
     Active Substance: ALLOPURINOL
     Route: 048
  3. DOCUSATE [Concomitant]
     Active Substance: DOCUSATE
     Dosage: 100 MG CAPSULES ONE ON ALTERNATE MORNINGS
  4. OMEPRAZOLE. [Concomitant]
     Active Substance: OMEPRAZOLE
     Dosage: 20 MG GASTRO?RESISTANT CAPSULES ONE TO BE TAKEN TWICE A DAY
  5. BISOPROLOL [Concomitant]
     Active Substance: BISOPROLOL
     Dosage: 10 MG AND 2.5 MG TABLETS EVERY MORNING
  6. CLOBAZAM. [Concomitant]
     Active Substance: CLOBAZAM
     Dosage: 10 MG TABLETS ONE TO BE TAKEN AT NIGHT
  7. PHENYTOIN SODIUM. [Concomitant]
     Active Substance: PHENYTOIN SODIUM
     Dosage: 300 MG CAPSULES ONE TO BE TAKEN AT NIGHT
     Route: 048
  8. DEXAMETHASONE. [Concomitant]
     Active Substance: DEXAMETHASONE
     Dosage: 2 MG TABLETS TAKE ONE IN THE MORNING
     Route: 048
  9. AMITRIPTYLINE [Concomitant]
     Active Substance: AMITRIPTYLINE
     Dosage: 50MG TABLETS 1 AT NIGHT
  10. LEVETIRACETAM. [Concomitant]
     Active Substance: LEVETIRACETAM
     Dosage: 500 MG TABLETS ONE TO BE TAKEN TWICE A DAY
  11. AMLODIPINE [Concomitant]
     Active Substance: AMLODIPINE BESYLATE
     Dosage: 50 MG TABLETS 1 AT NIGHT
  12. ATORVASTATIN [Concomitant]
     Active Substance: ATORVASTATIN
     Dosage: 40 MG TABLETS 1 IN THE EVENING
  13. IVABRADINE [Concomitant]
     Active Substance: IVABRADINE
     Dosage: 5 MG TABLETS ONE TO BE TAKEN TWICE A DAY
  14. ROPINIROLE. [Concomitant]
     Active Substance: ROPINIROLE
     Dosage: 500 MICROGRAM TABLETS TAKE ONE AT NIGHT 28 TABLET
  15. SEVELAMER [Concomitant]
     Active Substance: SEVELAMER
     Dosage: 800 MG TABLETS ONE TO BE TAKEN THREE TIMES A DAY WITH FOOD 84 TABLET
  16. ALFACALCIDOL [Concomitant]
     Active Substance: ALFACALCIDOL
     Route: 048
  17. DOXAZOSIN [Concomitant]
     Active Substance: DOXAZOSIN MESYLATE
     Dosage: 4 MG TABLETS ONE TO BE TAKEN TWICE A DAY (TOTAL DOSE 4 MG TWICE DAILY ON MON, WEDS, FRI AND 6 MG TWI

REACTIONS (1)
  - Seizure [Unknown]
